FAERS Safety Report 18897996 (Version 1)
Quarter: 2021Q1

REPORT INFORMATION
  Report Type: Spontaneous
  Country: US (occurrence: US)
  Receive Date: 20210212
  Receipt Date: 20210212
  Transmission Date: 20210420
  Serious: No
  Sender: FDA-Public Use
  Company Number: None

PATIENT
  Age: 76 Year
  Sex: Female

DRUGS (1)
  1. BEXAROTENE CAP 75MG [Suspect]
     Active Substance: BEXAROTENE
     Route: 048
     Dates: start: 201710

REACTIONS (4)
  - Memory impairment [None]
  - Constipation [None]
  - COVID-19 [None]
  - Hypothyroidism [None]

NARRATIVE: CASE EVENT DATE: 20210115
